FAERS Safety Report 13473627 (Version 2)
Quarter: 2017Q2

REPORT INFORMATION
  Report Type: Spontaneous
  Country: KR (occurrence: KR)
  Receive Date: 20170424
  Receipt Date: 20170425
  Transmission Date: 20170830
  Serious: Yes (Other)
  Sender: FDA-Public Use
  Company Number: PHHY2017KR059995

PATIENT
  Age: 50 Year
  Sex: Male

DRUGS (3)
  1. FELODIPINE. [Suspect]
     Active Substance: FELODIPINE
     Indication: HYPERTENSION
     Route: 065
  2. SIROLIMUS. [Suspect]
     Active Substance: SIROLIMUS
     Indication: RENAL TRANSPLANT
     Route: 065
  3. CICLOSPORIN [Suspect]
     Active Substance: CYCLOSPORINE
     Indication: RENAL TRANSPLANT
     Route: 065

REACTIONS (4)
  - Pulpitis dental [Unknown]
  - Gingival hypertrophy [Not Recovered/Not Resolved]
  - Noninfective gingivitis [Recovering/Resolving]
  - Gingival swelling [Unknown]
